FAERS Safety Report 11155731 (Version 1)
Quarter: 2015Q2

REPORT INFORMATION
  Report Type: Other
  Country: GB (occurrence: GB)
  Receive Date: 20150602
  Receipt Date: 20150602
  Transmission Date: 20150821
  Serious: Yes (Hospitalization)
  Sender: FDA-Public Use
  Company Number: GB-MYLANLABS-2015M1016789

PATIENT

DRUGS (4)
  1. CARBOPLATIN. [Suspect]
     Active Substance: CARBOPLATIN
     Indication: GASTRIC CANCER
     Dosage: 540 MG, UNK (DATE OF LAST DOSE PRIOR TO SAE: 22/FEB/2013)
     Route: 042
     Dates: start: 20120830
  2. EPIRUBICIN [Suspect]
     Active Substance: EPIRUBICIN
     Indication: GASTRIC CANCER
     Dosage: 100 MG, UNK (DATE OF LAST DOSE PRIOR TO SAE: 22/FEB/2013)
     Route: 042
     Dates: start: 20120830
  3. XELODA [Suspect]
     Active Substance: CAPECITABINE
     Indication: GASTRIC CANCER
     Dosage: 1250 MG, UNK (DATE OF LAST DOSE PRIOR TO SAE: 22/FEB/2013)
     Route: 048
     Dates: start: 20120830
  4. AVASTIN [Suspect]
     Active Substance: BEVACIZUMAB
     Indication: GASTRIC CANCER
     Dosage: 600 MG, UNK(DATE OF LAST DOSE PRIOR TO SAE: 22/FEB/2013)
     Route: 042
     Dates: start: 20120830

REACTIONS (2)
  - Constipation [Not Recovered/Not Resolved]
  - Abdominal pain [Not Recovered/Not Resolved]

NARRATIVE: CASE EVENT DATE: 20130301
